FAERS Safety Report 9612507 (Version 2)
Quarter: 2013Q4

REPORT INFORMATION
  Report Type: Report from Study
  Country: US (occurrence: US)
  Receive Date: 20131010
  Receipt Date: 20131115
  Transmission Date: 20140711
  Serious: Yes (Hospitalization)
  Sender: FDA-Public Use
  Company Number: US-US-EMD SERONO, INC.-7242264

PATIENT
  Age: 37 Year
  Sex: Female

DRUGS (3)
  1. REBIF [Suspect]
     Indication: MULTIPLE SCLEROSIS
     Route: 058
     Dates: start: 2006, end: 2012
  2. REBIF [Suspect]
     Route: 058
     Dates: start: 20131003
  3. REBIF [Suspect]
     Route: 058

REACTIONS (1)
  - Multiple sclerosis relapse [Recovering/Resolving]
